FAERS Safety Report 25882820 (Version 1)
Quarter: 2025Q4

REPORT INFORMATION
  Report Type: Spontaneous
  Country: US (occurrence: US)
  Receive Date: 20251006
  Receipt Date: 20251006
  Transmission Date: 20260117
  Serious: No
  Sender: TEVA
  Company Number: US-TEVA-VS-3379261

PATIENT
  Age: 50 Year
  Sex: Female
  Weight: 102.06 kg

DRUGS (2)
  1. COPAXONE [Suspect]
     Active Substance: GLATIRAMER ACETATE
     Indication: Product used for unknown indication
     Dosage: TIME INTERVAL: 0.33333333 WEEKS
     Route: 065
     Dates: start: 20231201
  2. MOUNJARO [Concomitant]
     Active Substance: TIRZEPATIDE
     Indication: Product used for unknown indication

REACTIONS (6)
  - Injection site dryness [Not Recovered/Not Resolved]
  - Injection site mass [Unknown]
  - Skin exfoliation [Not Recovered/Not Resolved]
  - Injection site pruritus [Unknown]
  - Anxiety [Unknown]
  - Injection site erythema [Unknown]
